FAERS Safety Report 9181612 (Version 2)
Quarter: 2013Q2

REPORT INFORMATION
  Report Type: Report from Study
  Country: DE (occurrence: DE)
  Receive Date: 20130322
  Receipt Date: 20130520
  Transmission Date: 20140414
  Serious: Yes (Other)
  Sender: FDA-Public Use
  Company Number: DE-UCBSA-081038

PATIENT
  Age: 28 Year
  Sex: Female

DRUGS (6)
  1. VIMPAT [Suspect]
     Indication: EPILEPSY
     Dosage: STARTING DOSE 50 MG/DAY
     Dates: start: 20110413, end: 2011
  2. VIMPAT [Suspect]
     Indication: EPILEPSY
     Dosage: DOSE AT VISIT 200 MG/DAY
     Dates: start: 2011, end: 20120301
  3. LAMOTRIGINE [Concomitant]
     Indication: EPILEPSY
     Dosage: DOSE 500 MG/DAY
  4. LAMOTRIGINE [Concomitant]
     Indication: EPILEPSY
     Dosage: DOSE WAS REDUCED TO 400 MG/DAY.
  5. ESLICARBAZEPINE [Concomitant]
     Indication: EPILEPSY
     Dosage: DOSE 400 MG/DAY
     Dates: end: 2011
  6. ESLICARBAZEPINE [Concomitant]
     Indication: EPILEPSY
     Dosage: DOSE OF 600 MG/DAY

REACTIONS (2)
  - Convulsion [Unknown]
  - Drug ineffective [Recovered/Resolved]
